FAERS Safety Report 17826206 (Version 1)
Quarter: 2020Q2

REPORT INFORMATION
  Report Type: Report from Study
  Country: AT (occurrence: AT)
  Receive Date: 20200526
  Receipt Date: 20200526
  Transmission Date: 20200714
  Serious: Yes (Other)
  Sender: FDA-Public Use
  Company Number: AT-JNJFOC-20200517053

PATIENT

DRUGS (1)
  1. REOPRO [Suspect]
     Active Substance: ABCIXIMAB
     Indication: INTRACRANIAL ANEURYSM
     Route: 042

REACTIONS (5)
  - Thrombosis [Unknown]
  - Post procedural haemorrhage [Unknown]
  - Off label use [Unknown]
  - Cerebral infarction [Unknown]
  - Product use in unapproved indication [Unknown]
